FAERS Safety Report 5471607-8 (Version None)
Quarter: 2007Q3

REPORT INFORMATION
  Report Type: 
  Country: None (occurrence: None)
  Receive Date: 20070928
  Receipt Date: 20070920
  Transmission Date: 20080115
  Serious: Yes (Other)
  Sender: FDA-Public Use
  Company Number: HQWYE265221SEP07

PATIENT
  Sex: Female
  Weight: 72.64 kg

DRUGS (7)
  1. EFFEXOR XR [Suspect]
     Indication: DEPRESSION
     Route: 048
     Dates: start: 20070501, end: 20070501
  2. EFFEXOR XR [Suspect]
     Route: 048
     Dates: start: 20070501, end: 20070601
  3. EFFEXOR XR [Suspect]
     Route: 048
     Dates: start: 20070601, end: 20070914
  4. EFFEXOR XR [Suspect]
     Route: 048
     Dates: start: 20070915, end: 20070918
  5. EFFEXOR XR [Suspect]
     Route: 048
     Dates: start: 20070920
  6. SINGULAIR [Concomitant]
     Indication: HYPERSENSITIVITY
     Dosage: 10 MG QAM
     Dates: start: 20070916
  7. ALLEGRA [Concomitant]
     Indication: HYPERSENSITIVITY
     Dosage: AS NEEDED
     Dates: end: 20070916

REACTIONS (24)
  - ABDOMINAL DISCOMFORT [None]
  - ABNORMAL DREAMS [None]
  - AGGRESSION [None]
  - AGITATION [None]
  - DIZZINESS [None]
  - DRUG WITHDRAWAL SYNDROME [None]
  - FATIGUE [None]
  - FEELING ABNORMAL [None]
  - FLATULENCE [None]
  - HEADACHE [None]
  - HEART RATE INCREASED [None]
  - INAPPROPRIATE AFFECT [None]
  - MEMORY IMPAIRMENT [None]
  - MUSCLE TWITCHING [None]
  - MYDRIASIS [None]
  - NAUSEA [None]
  - PRURITUS [None]
  - SPEECH DISORDER [None]
  - SUICIDAL IDEATION [None]
  - TINNITUS [None]
  - UNEVALUABLE EVENT [None]
  - URTICARIA [None]
  - VERTIGO [None]
  - WEIGHT INCREASED [None]
